FAERS Safety Report 10195849 (Version 2)
Quarter: 2014Q2

REPORT INFORMATION
  Report Type: Spontaneous
  Country: US (occurrence: None)
  Receive Date: 20140522
  Receipt Date: 20140624
  Transmission Date: 20141212
  Serious: Yes (Death, Hospitalization)
  Sender: FDA-Public Use
  Company Number: AUR-APL-2014-05930

PATIENT
  Age: 15 Year
  Sex: Female

DRUGS (3)
  1. NEVIRAPINE [Suspect]
     Indication: ANTIRETROVIRAL THERAPY
  2. RALTEGRAVIR (RALTEGRAVIR) [Suspect]
     Indication: ANTIRETROVIRAL THERAPY
  3. TRUVADA [Suspect]
     Indication: ANTIRETROVIRAL THERAPY

REACTIONS (14)
  - Progressive multifocal leukoencephalopathy [None]
  - Immune reconstitution inflammatory syndrome [None]
  - Dysarthria [None]
  - Urinary incontinence [None]
  - Hemiplegia [None]
  - Generalised tonic-clonic seizure [None]
  - Hemiplegia [None]
  - Respiratory disorder [None]
  - Aspiration [None]
  - Dysphagia [None]
  - Condition aggravated [None]
  - Asthenia [None]
  - General physical health deterioration [None]
  - Central nervous system lesion [None]
